FAERS Safety Report 25934301 (Version 1)
Quarter: 2025Q4

REPORT INFORMATION
  Report Type: Report from Study
  Country: US (occurrence: US)
  Receive Date: 20251017
  Receipt Date: 20251017
  Transmission Date: 20260118
  Serious: Yes (Life-Threatening, Hospitalization, Other)
  Sender: ABBVIE
  Company Number: US-ABBVIE-6269321

PATIENT
  Age: 53 Year
  Sex: Male
  Weight: 104.77 kg

DRUGS (9)
  1. HUMIRA [Suspect]
     Active Substance: ADALIMUMAB
     Indication: Psoriatic arthropathy
     Route: 058
     Dates: start: 2015, end: 201810
  2. XANAX [Concomitant]
     Active Substance: ALPRAZOLAM
     Indication: Anxiety
  3. ADDERALL [Concomitant]
     Active Substance: AMPHETAMINE ASPARTATE\AMPHETAMINE SULFATE\DEXTROAMPHETAMINE SACCHARATE\DEXTROAMPHETAMINE SULFATE
     Indication: Attention deficit hyperactivity disorder
  4. DYAZIDE [Concomitant]
     Active Substance: HYDROCHLOROTHIAZIDE\TRIAMTERENE
     Indication: Hypertension
     Dates: end: 20230502
  5. ASPIRIN [Concomitant]
     Active Substance: ASPIRIN
     Indication: Cardiac disorder
     Dates: start: 202305
  6. MIRTAZAPINE [Concomitant]
     Active Substance: MIRTAZAPINE
     Indication: Depression
     Dates: end: 20230520
  7. DICLOFENAC [Concomitant]
     Active Substance: DICLOFENAC
     Indication: Arthritis
  8. FAMOTIDINE [Concomitant]
     Active Substance: FAMOTIDINE
     Indication: Gastrooesophageal reflux disease
  9. ATORVASTATIN [Concomitant]
     Active Substance: ATORVASTATIN
     Indication: Blood cholesterol abnormal
     Dates: start: 202305

REACTIONS (25)
  - Cardiac arrest [Recovered/Resolved]
  - Nephrolithiasis [Recovered/Resolved]
  - Drug specific antibody present [Unknown]
  - Lupus-like syndrome [Recovered/Resolved]
  - Antinuclear antibody increased [Not Recovered/Not Resolved]
  - Joint swelling [Unknown]
  - Blood magnesium decreased [Recovered/Resolved]
  - Drug hypersensitivity [Unknown]
  - Russell^s viper venom time abnormal [Unknown]
  - Antinuclear antibody positive [Unknown]
  - Osteoporosis [Recovered/Resolved]
  - Antinuclear antibody positive [Unknown]
  - Russell^s viper venom time abnormal [Unknown]
  - Device physical property issue [Recovered/Resolved]
  - Electrocardiogram QT prolonged [Recovered/Resolved]
  - Hypersensitivity [Not Recovered/Not Resolved]
  - Russell^s viper venom time abnormal [Unknown]
  - Histone antibody positive [Recovering/Resolving]
  - Antiphospholipid antibodies positive [Unknown]
  - Blood potassium decreased [Recovered/Resolved]
  - Device breakage [Recovered/Resolved]
  - Activated partial thromboplastin time prolonged [Recovered/Resolved]
  - Myocarditis [Recovered/Resolved]
  - Tendon rupture [Recovered/Resolved]
  - Hypertension [Recovered/Resolved]

NARRATIVE: CASE EVENT DATE: 20170101
